FAERS Safety Report 16548055 (Version 2)
Quarter: 2021Q3

REPORT INFORMATION
  Report Type: Spontaneous
  Country: US (occurrence: US)
  Receive Date: 20190709
  Receipt Date: 20210709
  Transmission Date: 20211014
  Serious: No
  Sender: FDA-Public Use
  Company Number: US-ASTELLAS-2019US013425

PATIENT
  Age: 74 Year
  Sex: Male

DRUGS (2)
  1. MYRBETRIQ [Suspect]
     Active Substance: MIRABEGRON
     Indication: BLADDER DISORDER
     Route: 048
     Dates: start: 20190322
  2. MYRBETRIQ [Suspect]
     Active Substance: MIRABEGRON
     Indication: PROSTATIC DISORDER

REACTIONS (5)
  - Pain [Recovering/Resolving]
  - Therapeutic product effect incomplete [Unknown]
  - Confusional state [Unknown]
  - Blood pressure decreased [Unknown]
  - Muscle spasms [Recovering/Resolving]

NARRATIVE: CASE EVENT DATE: 20190324
